FAERS Safety Report 8768001 (Version 5)
Quarter: 2013Q2

REPORT INFORMATION
  Report Type: Spontaneous
  Country: US (occurrence: US)
  Receive Date: 20120905
  Receipt Date: 20130603
  Transmission Date: 20140414
  Serious: Yes (Hospitalization, Disabling, Other)
  Sender: FDA-Public Use
  Company Number: US-009507513-1203USA00780

PATIENT
  Sex: Female

DRUGS (7)
  1. FOSAMAX [Suspect]
     Indication: OSTEOPOROSIS
     Dosage: UNK
     Route: 048
     Dates: start: 200506, end: 2010
  2. FOSAMAX [Suspect]
     Indication: OSTEOPENIA
     Dosage: 70 MG, QW
     Route: 048
     Dates: start: 20050610
  3. ALENDRONATE SODIUM [Suspect]
     Dosage: 70 MG, QW
     Route: 048
     Dates: start: 20090109
  4. CALCIUM (UNSPECIFIED) (+) VITAMIN D (UNSPECIFIED) [Concomitant]
     Indication: OSTEOPOROSIS
     Dosage: 500/200 BID
     Route: 048
  5. CHOLECALCIFEROL [Concomitant]
     Indication: OSTEOPOROSIS
     Dosage: 800 IU QD
     Route: 048
     Dates: start: 20091026
  6. LORATADINE [Concomitant]
     Indication: HYPERSENSITIVITY
     Dosage: 10 MG, QD, PRN
     Route: 048
     Dates: start: 20091026
  7. ALBUTEROL [Concomitant]
     Indication: ASTHMA
     Dosage: 1-2 PUFFS Q 4 HOURS PRN
     Route: 055

REACTIONS (53)
  - Femur fracture [Unknown]
  - Open reduction of fracture [Unknown]
  - Femur fracture [Unknown]
  - Internal fixation of fracture [Unknown]
  - Open reduction of fracture [Unknown]
  - Deafness [Recovered/Resolved]
  - Intramedullary rod insertion [Unknown]
  - Surgery [Unknown]
  - Fracture nonunion [Unknown]
  - Device failure [Unknown]
  - Knee arthroplasty [Unknown]
  - Surgery [Unknown]
  - Medical device removal [Unknown]
  - Thyroidectomy [Unknown]
  - Open reduction of fracture [Unknown]
  - Bone graft [Unknown]
  - Bladder neck suspension [Unknown]
  - Bone graft [Recovering/Resolving]
  - Nausea [Unknown]
  - Vomiting [Unknown]
  - Low turnover osteopathy [Unknown]
  - Depression [Not Recovered/Not Resolved]
  - Anxiety [Not Recovered/Not Resolved]
  - Self esteem decreased [Not Recovered/Not Resolved]
  - Wrist fracture [Unknown]
  - Radius fracture [Unknown]
  - Device failure [Unknown]
  - Arthropathy [Unknown]
  - Joint injury [Unknown]
  - Face injury [Unknown]
  - Hyperlipidaemia [Unknown]
  - Hyperthyroidism [Unknown]
  - Adjustment disorder with depressed mood [Unknown]
  - Knee arthroplasty [Unknown]
  - Infection [Unknown]
  - Anaemia postoperative [Recovered/Resolved]
  - Hypothyroidism [Unknown]
  - Goitre [Unknown]
  - Fracture nonunion [Unknown]
  - Obstructive airways disorder [Unknown]
  - Asthma [Unknown]
  - Major depression [Recovering/Resolving]
  - Cerumen impaction [Recovered/Resolved]
  - Somnolence [Unknown]
  - Varicose vein [Unknown]
  - Major depression [Unknown]
  - Bone disorder [Unknown]
  - Osteoarthritis [Unknown]
  - Haemorrhagic anaemia [Recovering/Resolving]
  - Polyp [Unknown]
  - Gait disturbance [Unknown]
  - Malnutrition [Unknown]
  - Constipation [Unknown]
